FAERS Safety Report 12101268 (Version 1)
Quarter: 2016Q1

REPORT INFORMATION
  Report Type: Other
  Country: BR (occurrence: BR)
  Receive Date: 20160222
  Receipt Date: 20160222
  Transmission Date: 20160526
  Serious: Yes (Congenital Anomaly, Other)
  Sender: FDA-Public Use
  Company Number: BR-DEP_13675_2016

PATIENT

DRUGS (1)
  1. SODIUM DICLOFENAC [Suspect]
     Active Substance: DICLOFENAC SODIUM
     Indication: MATERNAL EXPOSURE DURING PREGNANCY
     Dosage: FREQUENCY UNKNOWN

REACTIONS (3)
  - Pulmonary hypertension [Recovered/Resolved]
  - Ductus arteriosus premature closure [Unknown]
  - Foetal exposure during pregnancy [Recovered/Resolved]
